FAERS Safety Report 5558744-4 (Version None)
Quarter: 2007Q4

REPORT INFORMATION
  Report Type: 
  Country: None (occurrence: None)
  Receive Date: 20071130
  Receipt Date: 20070817
  Transmission Date: 20080405
  Serious: No
  Sender: FDA-Public Use
  Company Number: US200708003949

PATIENT
  Age: 62 Year
  Sex: Female
  Weight: 65.8 kg

DRUGS (1)
  1. BYETTA [Suspect]
     Indication: TYPE 2 DIABETES MELLITUS
     Dosage: 15 UG, 2/D, SUBCUTANEOUS
     Route: 058
     Dates: start: 20070101

REACTIONS (2)
  - OVERDOSE [None]
  - WEIGHT DECREASED [None]
